FAERS Safety Report 13683995 (Version 1)
Quarter: 2017Q2

REPORT INFORMATION
  Report Type: Spontaneous
  Country: RU (occurrence: RU)
  Receive Date: 20170623
  Receipt Date: 20170623
  Transmission Date: 20170830
  Serious: Yes (Other)
  Sender: FDA-Public Use
  Company Number: RU-ASTRAZENECA-2017SE63176

PATIENT
  Age: 65 Year
  Sex: Male
  Weight: 119 kg

DRUGS (6)
  1. BRILINTA [Suspect]
     Active Substance: TICAGRELOR
     Indication: MYOCARDIAL INFARCTION
     Route: 048
     Dates: start: 201701
  2. VALZ N [Concomitant]
     Active Substance: HYDROCHLOROTHIAZIDE\VALSARTAN
  3. ATORIS [Concomitant]
     Active Substance: ATORVASTATIN CALCIUM
  4. BIPROL [Concomitant]
  5. NOLPAZA [Concomitant]
     Active Substance: PANTOPRAZOLE SODIUM
  6. DE-NOL [Concomitant]

REACTIONS (1)
  - Gastritis erosive [Not Recovered/Not Resolved]

NARRATIVE: CASE EVENT DATE: 201704
